FAERS Safety Report 8699349 (Version 2)
Quarter: 2013Q1

REPORT INFORMATION
  Report Type: Spontaneous
  Country: JP (occurrence: JP)
  Receive Date: 20120802
  Receipt Date: 20130206
  Transmission Date: 20140127
  Serious: Yes (Other)
  Sender: FDA-Public Use
  Company Number: JP-ELI_LILLY_AND_COMPANY-JP201102002165

PATIENT
  Age: 75 Year
  Sex: Female

DRUGS (2)
  1. FORTEO [Suspect]
     Dosage: UNK, UNK
     Route: 058
     Dates: start: 201101, end: 20110217
  2. FORTEO [Suspect]
     Dosage: UNK
     Route: 058
     Dates: start: 20110225

REACTIONS (10)
  - Wrist fracture [Unknown]
  - Fracture [Unknown]
  - Fall [Unknown]
  - Dizziness [Unknown]
  - Spinal compression fracture [Unknown]
  - Parkinson^s disease [Unknown]
  - Cataract operation [Recovered/Resolved]
  - Eczema [Unknown]
  - Herpes zoster [Unknown]
  - Injection site swelling [Unknown]
